FAERS Safety Report 15948735 (Version 1)
Quarter: 2019Q1

REPORT INFORMATION
  Report Type: Spontaneous
  Country: US (occurrence: US)
  Receive Date: 20190211
  Receipt Date: 20190211
  Transmission Date: 20190417
  Serious: No
  Sender: FDA-Public Use
  Company Number: US-GILEAD-2019-0389709

PATIENT
  Age: 58 Year
  Sex: Female

DRUGS (2)
  1. LATANOPROST. [Concomitant]
     Active Substance: LATANOPROST
  2. VEMLIDY [Suspect]
     Active Substance: TENOFOVIR ALAFENAMIDE FUMARATE
     Indication: GASTROINTESTINAL SOUNDS ABNORMAL
     Dosage: 25 MG
     Route: 048
     Dates: start: 201805

REACTIONS (2)
  - Off label use [Not Recovered/Not Resolved]
  - Product dose omission [Unknown]
